FAERS Safety Report 23692058 (Version 1)
Quarter: 2024Q2

REPORT INFORMATION
  Report Type: Spontaneous
  Country: US (occurrence: US)
  Receive Date: 20240401
  Receipt Date: 20240401
  Transmission Date: 20240716
  Serious: Yes (Death, Hospitalization, Other)
  Sender: FDA-Public Use
  Company Number: US-MAYNE PHARMA-2024MYN000078

PATIENT

DRUGS (1)
  1. DORYX [Suspect]
     Active Substance: DOXYCYCLINE HYCLATE
     Indication: Postoperative wound infection
     Dosage: UNK
     Route: 065

REACTIONS (2)
  - Acute myocardial infarction [Fatal]
  - Pancreatitis [Recovering/Resolving]
